FAERS Safety Report 7407602-9 (Version None)
Quarter: 2011Q2

REPORT INFORMATION
  Report Type: 
  Country: None (occurrence: None)
  Receive Date: 20110405
  Receipt Date: 20110325
  Transmission Date: 20111010
  Serious: Yes (Hospitalization, Disabling)
  Sender: FDA-Public Use
  Company Number: 11-159

PATIENT
  Age: 48 Year
  Sex: Male

DRUGS (2)
  1. ALEVE [Suspect]
     Indication: MUSCLE STRAIN
     Dosage: AT LEAST 220-440 MG/DAY
     Dates: start: 20100401, end: 20100501
  2. ALEVE [Suspect]
     Indication: MUSCLE STRAIN
     Dosage: AT LEAST 220-440 MG/DAY
     Dates: start: 20100804

REACTIONS (10)
  - VOMITING [None]
  - DIZZINESS [None]
  - PRURITUS [None]
  - NAUSEA [None]
  - FEELING HOT [None]
  - RASH MACULAR [None]
  - GALLBLADDER PAIN [None]
  - SNEEZING [None]
  - IMPAIRED WORK ABILITY [None]
  - CHILLS [None]
